FAERS Safety Report 7530282-9 (Version None)
Quarter: 2011Q2

REPORT INFORMATION
  Report Type: 
  Country: None (occurrence: None)
  Receive Date: 20110531
  Receipt Date: 20110517
  Transmission Date: 20111010
  Serious: Yes (Life-Threatening, Hospitalization)
  Sender: FDA-Public Use
  Company Number: 2011MA006013

PATIENT
  Age: 70 Year
  Sex: Female

DRUGS (1)
  1. ALBUTEROL SULFATE [Suspect]

REACTIONS (7)
  - RHONCHI [None]
  - RESPIRATORY ACIDOSIS [None]
  - ELECTROCARDIOGRAM ST SEGMENT ELEVATION [None]
  - SINUS TACHYCARDIA [None]
  - METABOLIC ACIDOSIS [None]
  - TROPONIN I INCREASED [None]
  - CHEST PAIN [None]
